FAERS Safety Report 5039604-4 (Version None)
Quarter: 2006Q2

REPORT INFORMATION
  Report Type: 
  Country: None (occurrence: None)
  Receive Date: 20060629
  Receipt Date: 20060621
  Transmission Date: 20061013
  Serious: Yes (Hospitalization)
  Sender: FDA-Public Use
  Company Number: DE-ABBOTT-06P-062-0336791-00

PATIENT
  Sex: Male

DRUGS (4)
  1. HUMIRA [Suspect]
     Indication: ERYTHRODERMIC PSORIASIS
     Route: 058
     Dates: start: 20060515, end: 20060614
  2. HUMIRA [Suspect]
     Indication: PSORIATIC ARTHROPATHY
  3. DICLOFENAC [Concomitant]
     Indication: PAIN
     Route: 048
  4. DICLOFENAC [Concomitant]
     Indication: PSORIATIC ARTHROPATHY

REACTIONS (1)
  - ERYTHRODERMIC PSORIASIS [None]
